FAERS Safety Report 19714574 (Version 1)
Quarter: 2021Q3

REPORT INFORMATION
  Report Type: Spontaneous
  Country: US (occurrence: US)
  Receive Date: 20210818
  Receipt Date: 20210818
  Transmission Date: 20211014
  Serious: Yes (Other)
  Sender: FDA-Public Use
  Company Number: US-AMGEN-USASP2021124498

PATIENT
  Sex: Male

DRUGS (3)
  1. COVID?19 VACCINE [Concomitant]
     Dosage: UNK
     Dates: start: 202103
  2. REPATHA [Suspect]
     Active Substance: EVOLOCUMAB
     Indication: BLOOD CHOLESTEROL INCREASED
     Dosage: 140 MILLIGRAM, Q2WK
     Route: 065
  3. COVID?19 VACCINE [Concomitant]
     Dosage: UNK
     Dates: start: 202102

REACTIONS (4)
  - Coronary arterial stent insertion [Unknown]
  - Injection site mass [Unknown]
  - Rheumatoid arthritis [Not Recovered/Not Resolved]
  - Injection site pain [Unknown]

NARRATIVE: CASE EVENT DATE: 2021
